FAERS Safety Report 14135091 (Version 4)
Quarter: 2018Q1

REPORT INFORMATION
  Report Type: Spontaneous
  Country: GB (occurrence: GB)
  Receive Date: 20171027
  Receipt Date: 20180222
  Transmission Date: 20180508
  Serious: Yes (Other)
  Sender: FDA-Public Use
  Company Number: GB-SA-2017SA207111

PATIENT
  Age: 62 Year
  Sex: Female

DRUGS (4)
  1. METFORMIN [Concomitant]
     Active Substance: METFORMIN HYDROCHLORIDE
     Route: 065
  2. VITAMIN D [Concomitant]
     Active Substance: CHOLECALCIFEROL
     Route: 065
  3. PRALUENT [Suspect]
     Active Substance: ALIROCUMAB
     Route: 058
     Dates: start: 20170101, end: 20171019
  4. ALIROCUMAB PREFILLED PEN [Suspect]
     Active Substance: ALIROCUMAB
     Dates: start: 20170101, end: 20171019

REACTIONS (19)
  - Injection site scar [Not Recovered/Not Resolved]
  - Injection site warmth [Recovered/Resolved]
  - Lower respiratory tract infection [Recovering/Resolving]
  - Rhinorrhoea [Unknown]
  - Dysgeusia [Unknown]
  - Erythema [Unknown]
  - Injection site erythema [Unknown]
  - Musculoskeletal disorder [Unknown]
  - Influenza like illness [Unknown]
  - Injection site induration [Unknown]
  - Bone pain [Unknown]
  - Dry eye [Unknown]
  - Drug hypersensitivity [Unknown]
  - Injection site bruising [Unknown]
  - Injection site infection [Unknown]
  - Wheezing [Unknown]
  - Oropharyngeal pain [Unknown]
  - Myalgia [Unknown]
  - Injection site pain [Unknown]

NARRATIVE: CASE EVENT DATE: 20170101
